FAERS Safety Report 9364698 (Version 1)
Quarter: 2013Q2

REPORT INFORMATION
  Report Type: Spontaneous
  Country: US (occurrence: US)
  Receive Date: 20130624
  Receipt Date: 20130624
  Transmission Date: 20140414
  Serious: No
  Sender: FDA-Public Use
  Company Number: US-ASTRAZENECA-2013SE42695

PATIENT
  Age: 58 Year
  Sex: Female

DRUGS (7)
  1. CRESTOR [Suspect]
     Indication: BLOOD CHOLESTEROL INCREASED
     Route: 048
     Dates: start: 2006
  2. HUMULIN [Concomitant]
     Indication: DIABETES MELLITUS
  3. NOVOLIN [Concomitant]
     Indication: DIABETES MELLITUS
  4. LOTROL [Concomitant]
     Indication: HYPERTENSION
     Route: 048
  5. FUROSEMIDE [Concomitant]
     Indication: JOINT SWELLING
  6. MVI [Concomitant]
     Indication: PROPHYLAXIS
  7. CARVEDILOL [Concomitant]
     Indication: HEART RATE INCREASED

REACTIONS (3)
  - Heart rate increased [Recovered/Resolved]
  - Dyspepsia [Not Recovered/Not Resolved]
  - Intentional drug misuse [Unknown]
